FAERS Safety Report 17466080 (Version 1)
Quarter: 2020Q1

REPORT INFORMATION
  Report Type: Spontaneous
  Country: CN (occurrence: CN)
  Receive Date: 20200227
  Receipt Date: 20200227
  Transmission Date: 20200409
  Serious: Yes (Other)
  Sender: FDA-Public Use
  Company Number: CN-GLAXOSMITHKLINE-CN2020033132

PATIENT
  Sex: Male

DRUGS (1)
  1. VOLTAREN [Suspect]
     Active Substance: DICLOFENAC SODIUM
     Indication: GOUT
     Dosage: 25 MG

REACTIONS (3)
  - Haematochezia [Unknown]
  - Drug hypersensitivity [Unknown]
  - Wrong technique in product usage process [Unknown]
